FAERS Safety Report 6184914-0 (Version None)
Quarter: 2009Q2

REPORT INFORMATION
  Report Type: 
  Country: None (occurrence: None)
  Receive Date: 20090511
  Receipt Date: 20090429
  Transmission Date: 20091009
  Serious: Yes (Other)
  Sender: FDA-Public Use
  Company Number: ES-RANBAXY-2009RR-23707

PATIENT
  Age: 54 Year
  Sex: Male

DRUGS (21)
  1. RISPERIDONE [Suspect]
     Indication: PSYCHOTIC DISORDER
     Dosage: 1 MG, QD
     Route: 048
  2. SIMVASTATIN [Suspect]
     Dosage: 40 MG, QD
  3. CYCLOSPORINE [Suspect]
     Indication: PROPHYLAXIS
     Dosage: 0.5 MG, BID
     Route: 042
  4. CYCLOSPORINE [Suspect]
     Dosage: 1.5 MG, BID
  5. ATENOLOL [Concomitant]
     Dosage: 25 MG, QD
  6. ENALAPRIL MALEATE [Concomitant]
     Dosage: 5 MG, QD
  7. ACYCLOVIR SODIUM [Concomitant]
     Indication: PROPHYLAXIS
     Dosage: 250 MG, BID
     Route: 042
  8. VORICONAZOLE [Concomitant]
     Indication: PROPHYLAXIS
     Dosage: 200 MG, BID
     Route: 048
  9. METHOTREXATE [Concomitant]
     Dosage: 15 MG/M2, UNK
     Route: 042
  10. METHOTREXATE [Concomitant]
     Dosage: 10 MG/M2, UNK
     Route: 042
  11. IDARUBICIN HCL [Concomitant]
     Indication: CHEMOTHERAPY
     Dosage: 12 MG/M2, UNK
     Route: 042
     Dates: start: 20060101
  12. CITARABINE [Concomitant]
     Indication: CHEMOTHERAPY
     Dosage: 500 MG/M2, BID
     Route: 042
     Dates: start: 20060101
  13. CITARABINE [Concomitant]
     Dosage: 500 MG/M2, BID
     Route: 042
     Dates: start: 20061101
  14. ETOPOZIDE [Concomitant]
     Indication: CHEMOTHERAPY
     Dosage: 100 MG/M2, UNK
     Route: 042
     Dates: start: 20060101
  15. MITOXANTRONE [Concomitant]
     Indication: CHEMOTHERAPY
     Dosage: 12 MG/M2, UNK
     Route: 042
     Dates: start: 20061101
  16. PENTAMIDINE ISETHIONATE [Concomitant]
     Dosage: 300 MG, UNK
     Route: 055
  17. FLUDARABINE PHOSPHATE [Concomitant]
     Dosage: 30 MG/M2, QD
     Route: 042
  18. BUSULFANE [Concomitant]
     Dosage: 1 MG/KG, QID
     Route: 042
  19. MEROPENEM [Concomitant]
     Indication: PYREXIA
     Dosage: 1 G, TID
     Route: 042
  20. TEICOPLANINE [Concomitant]
     Indication: PYREXIA
     Dosage: 400 MG, BID
     Route: 042
  21. TEICOPLANINE [Concomitant]
     Dosage: 400 MG, QD
     Route: 042

REACTIONS (2)
  - DRUG INTERACTION [None]
  - RENAL FAILURE ACUTE [None]
